FAERS Safety Report 11448566 (Version 1)
Quarter: 2015Q3

REPORT INFORMATION
  Report Type: Spontaneous
  Country: US (occurrence: US)
  Receive Date: 20150902
  Receipt Date: 20150902
  Transmission Date: 20151125
  Serious: No
  Sender: FDA-Public Use
  Company Number: US-VIIV HEALTHCARE LIMITED-US2015GSK096912

PATIENT
  Sex: Male

DRUGS (4)
  1. TRUVADA [Suspect]
     Active Substance: EMTRICITABINE\TENOFOVIR DISOPROXIL FUMARATE
  2. RITONAVIR. [Suspect]
     Active Substance: RITONAVIR
  3. ATAZANAVIR [Suspect]
     Active Substance: ATAZANAVIR
  4. TRIUMEQ [Suspect]
     Active Substance: ABACAVIR SULFATE\DOLUTEGRAVIR SODIUM\LAMIVUDINE
     Dosage: UNK
     Dates: start: 20150609

REACTIONS (3)
  - Proteinuria [Unknown]
  - Diarrhoea [Unknown]
  - Urine phosphorus abnormal [Unknown]

NARRATIVE: CASE EVENT DATE: 20150626
